FAERS Safety Report 18656542 (Version 2)
Quarter: 2021Q1

REPORT INFORMATION
  Report Type: Report from Study
  Country: US (occurrence: US)
  Receive Date: 20201223
  Receipt Date: 20210104
  Transmission Date: 20210419
  Serious: Yes (Other)
  Sender: FDA-Public Use
  Company Number: US-JNJFOC-20201237411

PATIENT
  Sex: Female

DRUGS (2)
  1. SPRAVATO [Suspect]
     Active Substance: ESKETAMINE
     Indication: DEPRESSION
     Dates: start: 20200228, end: 20200228
  2. SPRAVATO [Suspect]
     Active Substance: ESKETAMINE
     Dosage: 84MG, 20 TOTAL DOSES
     Dates: start: 20200304, end: 20201021

REACTIONS (1)
  - Mastectomy [Unknown]
